FAERS Safety Report 12136788 (Version 1)
Quarter: 2016Q1

REPORT INFORMATION
  Report Type: Spontaneous
  Country: US (occurrence: None)
  Receive Date: 20160301
  Receipt Date: 20160301
  Transmission Date: 20160526
  Serious: Yes (Hospitalization)
  Sender: FDA-Public Use
  Company Number: None

PATIENT
  Age: 60 Year
  Sex: Male
  Weight: 58.2 kg

DRUGS (2)
  1. TRAMADOL. [Suspect]
     Active Substance: TRAMADOL
     Indication: PAIN
     Route: 048
     Dates: start: 20140927, end: 20150913
  2. AMITRIPTYLINE [Suspect]
     Active Substance: AMITRIPTYLINE
     Dosage: 300 MG PM PO
     Route: 048
     Dates: start: 20021004

REACTIONS (7)
  - Electroencephalogram abnormal [None]
  - Inappropriate schedule of drug administration [None]
  - Seizure [None]
  - Overdose [None]
  - Tongue biting [None]
  - Unresponsive to stimuli [None]
  - Urinary incontinence [None]

NARRATIVE: CASE EVENT DATE: 20150913
